FAERS Safety Report 17525853 (Version 1)
Quarter: 2020Q1

REPORT INFORMATION
  Report Type: Spontaneous
  Country: US (occurrence: US)
  Receive Date: 20200303
  Receipt Date: 20200303
  Transmission Date: 20200409
  Serious: No
  Sender: FDA-Public Use
  Company Number: None

PATIENT
  Age: 35 Year
  Sex: Male
  Weight: 83.91 kg

DRUGS (1)
  1. OSELTAMIVIR 75MG CAPSULES (10 CAPSULES IN BOTTLE). [Suspect]
     Active Substance: OSELTAMIVIR
     Indication: VIRAL INFECTION
     Dosage: ?          QUANTITY:1 CAPSULE;OTHER FREQUENCY:EVERY 12 HOURS ;?
     Route: 048
     Dates: start: 20200128, end: 20200128

REACTIONS (1)
  - Vomiting [None]

NARRATIVE: CASE EVENT DATE: 20200128
